FAERS Safety Report 5369022-0 (Version None)
Quarter: 2007Q2

REPORT INFORMATION
  Report Type: 
  Country: None (occurrence: None)
  Receive Date: 20070625
  Receipt Date: 20061207
  Transmission Date: 20071010
  Serious: No
  Sender: FDA-Public Use
  Company Number: US-ASTRAZENECA-2006UW27248

PATIENT
  Age: 70 Year
  Sex: Female
  Weight: 77.1 kg

DRUGS (10)
  1. CRESTOR [Suspect]
     Indication: BLOOD CHOLESTEROL INCREASED
     Route: 048
  2. PLAVIX [Concomitant]
  3. NABUMETONE [Concomitant]
  4. SERTRALINE HCL [Concomitant]
  5. AVANDIA [Concomitant]
  6. CLOPIDOGREL [Concomitant]
  7. DIGOXIN [Concomitant]
  8. INDOCIN [Concomitant]
  9. ACEON [Concomitant]
  10. FAMVIR [Concomitant]

REACTIONS (2)
  - CONSTIPATION [None]
  - GASTROINTESTINAL DISORDER [None]
